FAERS Safety Report 8264177-2 (Version None)
Quarter: 2012Q2

REPORT INFORMATION
  Report Type: 
  Country: None (occurrence: None)
  Receive Date: 20120403
  Receipt Date: 20120321
  Transmission Date: 20120825
  Serious: Yes (Hospitalization, Other)
  Sender: FDA-Public Use
  Company Number: 2009AL001478

PATIENT
  Age: 72 Year
  Sex: Female
  Weight: 61.0542 kg

DRUGS (50)
  1. FLUCONAZOLE [Concomitant]
  2. METHPREDNISONE [Concomitant]
  3. PRILOSEC [Concomitant]
  4. GAVISCON [Concomitant]
  5. CIPROFLOXACIN HYDROCHLORIDE [Concomitant]
  6. PREMARIN [Concomitant]
  7. FUROSEMIDE [Concomitant]
  8. LEXAPRO [Concomitant]
  9. BONIVA [Concomitant]
  10. CLINDAMYCIN [Concomitant]
  11. LEVAQUIN [Concomitant]
  12. PREVACID [Concomitant]
  13. MEDROL [Concomitant]
  14. BACTRIM [Concomitant]
  15. FLAXSEED [Concomitant]
  16. AVELOX [Concomitant]
  17. FISH OIL [Concomitant]
  18. CALCIUM CARBONATE [Concomitant]
  19. METOPROLOL TARTRATE [Concomitant]
  20. CITRACAL +D [Concomitant]
  21. DIFLUCAN [Concomitant]
  22. ZYRTEC [Concomitant]
  23. DIAZEPAM [Concomitant]
  24. CYMBALTA [Concomitant]
  25. PRIMACOR [Concomitant]
  26. ANTARA (MICRONIZED) [Concomitant]
  27. LEVOTHYROXINE SODIUM [Concomitant]
  28. SYNTHROID [Concomitant]
  29. LOPRESSOR [Concomitant]
  30. VITAMIN B-12 [Concomitant]
  31. ADVICOR [Concomitant]
  32. SOLU-MEDROL [Concomitant]
  33. ELAVIL [Concomitant]
  34. NEURONTIN [Concomitant]
  35. XANAX [Concomitant]
  36. FEXOFENADINE [Concomitant]
  37. PHENAZOPYRIDINE HCL TAB [Concomitant]
  38. ASPIRIN [Concomitant]
  39. PRAVASTATIN [Concomitant]
  40. DIAZEPAM [Concomitant]
  41. OMEPRAZOLE [Concomitant]
  42. CEPHALEXIN [Concomitant]
  43. TRICOR [Concomitant]
  44. DIGOXIN [Suspect]
     Indication: PRODUCT USED FOR UNKNOWN INDICATION
     Dosage: 0.25 MG;QD;PO
     Route: 048
     Dates: start: 20040923, end: 20090720
  45. TOPROL-XL [Concomitant]
  46. HYDROCORTISONE [Concomitant]
  47. SPIRONOLACTONE [Concomitant]
  48. ALTACE [Concomitant]
  49. VITAMIN E [Concomitant]
  50. DETROL [Concomitant]

REACTIONS (79)
  - ISCHAEMIA [None]
  - CHOLECYSTITIS [None]
  - CYSTOCELE [None]
  - VENOUS INSUFFICIENCY [None]
  - FLUSHING [None]
  - VENTRICULAR EXTRASYSTOLES [None]
  - PALPITATIONS [None]
  - ENTEROCOCCUS TEST POSITIVE [None]
  - CHILLS [None]
  - STRESS [None]
  - HYPOAESTHESIA [None]
  - RASH GENERALISED [None]
  - ARTHRALGIA [None]
  - POLLAKIURIA [None]
  - RECTOCELE [None]
  - TREMOR [None]
  - UPPER RESPIRATORY TRACT INFECTION [None]
  - ARTERIOSCLEROSIS CORONARY ARTERY [None]
  - OEDEMA PERIPHERAL [None]
  - SWELLING [None]
  - URINARY TRACT INFECTION [None]
  - DEPRESSION [None]
  - ABDOMINAL PAIN [None]
  - CHOLELITHIASIS [None]
  - ACTIVITIES OF DAILY LIVING IMPAIRED [None]
  - FEAR [None]
  - ORTHOPNOEA [None]
  - FEELING ABNORMAL [None]
  - CARDIAC FAILURE [None]
  - RASH MACULAR [None]
  - ABDOMINAL DISTENSION [None]
  - FOOD INTOLERANCE [None]
  - PANIC ATTACK [None]
  - ABDOMINAL PAIN LOWER [None]
  - HYPERTRIGLYCERIDAEMIA [None]
  - OSTEOPENIA [None]
  - ATRIAL TACHYCARDIA [None]
  - ANHEDONIA [None]
  - PARAESTHESIA [None]
  - SLEEP DISORDER [None]
  - DYSPNOEA PAROXYSMAL NOCTURNAL [None]
  - MYALGIA [None]
  - CARDIAC STRESS TEST ABNORMAL [None]
  - BREAST CALCIFICATIONS [None]
  - CHEST PAIN [None]
  - CHEST DISCOMFORT [None]
  - EAR DISORDER [None]
  - OROPHARYNGEAL PAIN [None]
  - EPIGASTRIC DISCOMFORT [None]
  - VULVOVAGINAL CANDIDIASIS [None]
  - DISCOMFORT [None]
  - DIZZINESS [None]
  - ASTHENIA [None]
  - PYREXIA [None]
  - DECREASED APPETITE [None]
  - NAUSEA [None]
  - DYSPEPSIA [None]
  - VITAMIN B12 DEFICIENCY [None]
  - STRESS URINARY INCONTINENCE [None]
  - NERVOUSNESS [None]
  - ATRIAL FIBRILLATION [None]
  - TYPE 2 DIABETES MELLITUS [None]
  - SEBORRHOEIC KERATOSIS [None]
  - MULTIPLE INJURIES [None]
  - DYSPNOEA [None]
  - FATIGUE [None]
  - INTERMITTENT CLAUDICATION [None]
  - ANXIETY [None]
  - DEHYDRATION [None]
  - INFLUENZA [None]
  - PAIN [None]
  - UPPER-AIRWAY COUGH SYNDROME [None]
  - HYPOTHYROIDISM [None]
  - NEUROPATHY PERIPHERAL [None]
  - LOCAL SWELLING [None]
  - DYSURIA [None]
  - ERYTHEMA [None]
  - CORONARY ARTERY STENOSIS [None]
  - HEPATIC CYST [None]
